FAERS Safety Report 7161085-5 (Version None)
Quarter: 2010Q4

REPORT INFORMATION
  Report Type: 
  Country: None (occurrence: None)
  Receive Date: 20101215
  Receipt Date: 20101206
  Transmission Date: 20110411
  Serious: Yes (Hospitalization)
  Sender: FDA-Public Use
  Company Number: US-BIOGENIDEC-2010BI040492

PATIENT
  Age: 36 Year
  Sex: Female

DRUGS (6)
  1. TYSABRI [Suspect]
     Indication: MULTIPLE SCLEROSIS
     Route: 042
     Dates: start: 20100721
  2. NAPROXEN [Concomitant]
     Indication: ARTHRALGIA
     Route: 048
  3. ADVIL [Concomitant]
     Indication: ARTHRITIS
     Route: 048
     Dates: start: 19900101
  4. ALEVE (CAPLET) [Concomitant]
     Indication: ARTHRITIS
     Route: 048
     Dates: start: 19900101
  5. SYNTHROID [Concomitant]
     Indication: HYPOTHYROIDISM
     Route: 048
     Dates: start: 20070101
  6. BACLOFEN [Concomitant]
     Indication: MUSCLE SPASTICITY
     Dates: start: 20100301

REACTIONS (3)
  - ARTHRALGIA [None]
  - DEVICE BREAKAGE [None]
  - DEVICE MATERIAL ISSUE [None]
